FAERS Safety Report 8446884 (Version 4)
Quarter: 2013Q1

REPORT INFORMATION
  Report Type: Spontaneous
  Country: CA (occurrence: None)
  Receive Date: 20120215
  Receipt Date: 20121213
  Transmission Date: 20140127
  Serious: Yes (Other)
  Sender: FDA-Public Use
  Company Number: 2012030961

PATIENT
  Age: 53 Year
  Sex: Female

DRUGS (3)
  1. PRIVIGEN [Suspect]
     Indication: PSEUDOMEMBRANOUS COLITIS
     Dosage: 15 G
     Route: 042
     Dates: start: 20120114, end: 20120118
  2. PRIVIGEN [Suspect]
  3. PRIVIGEN [Suspect]

REACTIONS (3)
  - Off label use [None]
  - Haemolysis [None]
  - Anti-erythrocyte antibody positive [None]
